FAERS Safety Report 8548294-5 (Version None)
Quarter: 2012Q3

REPORT INFORMATION
  Report Type: 
  Country: None (occurrence: None)
  Receive Date: 20120730
  Receipt Date: 20120719
  Transmission Date: 20120928
  Serious: Yes (Hospitalization, Other)
  Sender: FDA-Public Use
  Company Number: US-JNJFOC-20120400731

PATIENT
  Sex: Female
  Weight: 66.23 kg

DRUGS (5)
  1. REMICADE [Suspect]
     Route: 042
     Dates: start: 20120701
  2. ARAVA [Suspect]
     Indication: PRODUCT USED FOR UNKNOWN INDICATION
     Route: 048
     Dates: start: 20110401, end: 20120601
  3. REMICADE [Suspect]
     Dosage: ONCE A MONTH
     Route: 042
     Dates: start: 20110401
  4. REMICADE [Suspect]
     Indication: RHEUMATOID ARTHRITIS
     Route: 042
     Dates: start: 20110401
  5. MEDROL [Suspect]
     Indication: PRODUCT USED FOR UNKNOWN INDICATION
     Route: 048
     Dates: start: 20120601

REACTIONS (9)
  - PHOTOSENSITIVITY REACTION [None]
  - INCISIONAL DRAINAGE [None]
  - NAUSEA [None]
  - IMPLANT SITE PAIN [None]
  - SCAR [None]
  - MENINGITIS CHEMICAL [None]
  - DRUG EFFECT DECREASED [None]
  - INCISION SITE HAEMORRHAGE [None]
  - NIGHTMARE [None]
